FAERS Safety Report 9064036 (Version 8)
Quarter: 2015Q3

REPORT INFORMATION
  Report Type: Report from Study
  Country: CA (occurrence: CA)
  Receive Date: 20130213
  Receipt Date: 20150908
  Transmission Date: 20151125
  Serious: Yes (Other)
  Sender: FDA-Public Use
  Company Number: CA-ROCHE-1190121

PATIENT
  Age: 40 Year
  Sex: Female
  Weight: 84.5 kg

DRUGS (15)
  1. MORPHINE [Concomitant]
     Active Substance: MORPHINE
     Indication: PAIN
     Dosage: 10 TO  20 MG
     Route: 048
  2. ACETAMINOPHEN. [Concomitant]
     Active Substance: ACETAMINOPHEN
     Indication: PREMEDICATION
     Route: 048
     Dates: start: 20120522
  3. METHYLPREDNISOLONE. [Concomitant]
     Active Substance: METHYLPREDNISOLONE
     Route: 042
     Dates: start: 20120522
  4. AZATHIOPRINE. [Suspect]
     Active Substance: AZATHIOPRINE
     Indication: PRODUCT USED FOR UNKNOWN INDICATION
     Route: 065
     Dates: start: 2014
  5. PREDNISONE. [Concomitant]
     Active Substance: PREDNISONE
  6. ATIVAN [Concomitant]
     Active Substance: LORAZEPAM
     Dosage: 1-3 MG
     Route: 065
     Dates: start: 20120207
  7. RITUXAN [Suspect]
     Active Substance: RITUXIMAB
     Indication: GRANULOMATOSIS WITH POLYANGIITIS
     Dosage: THE LAST DOSE OF RITUXIMAB ADMINISTERED ON 02/JUL/2014.
     Route: 042
     Dates: start: 20120522
  8. FENTANYL. [Concomitant]
     Active Substance: FENTANYL
     Indication: SEDATION
     Route: 042
  9. FENTANYL. [Concomitant]
     Active Substance: FENTANYL
     Route: 042
  10. LEUCOVORIN. [Concomitant]
     Active Substance: LEUCOVORIN
  11. TALWIN [Concomitant]
     Active Substance: PENTAZOCINE LACTATE
  12. DIPHENHYDRAMINE HCL [Concomitant]
     Active Substance: DIPHENHYDRAMINE HYDROCHLORIDE
     Indication: PREMEDICATION
     Route: 048
     Dates: start: 20120522
  13. CLONAZEPAM. [Concomitant]
     Active Substance: CLONAZEPAM
  14. ZOPICLONE [Concomitant]
     Active Substance: ZOPICLONE
     Dosage: 7.5 MG TO 15 MG
     Route: 065
     Dates: start: 2012
  15. METHOTREXATE [Concomitant]
     Active Substance: METHOTREXATE

REACTIONS (15)
  - Colitis [Recovered/Resolved]
  - Panic attack [Not Recovered/Not Resolved]
  - Pain [Unknown]
  - Infusion related reaction [Unknown]
  - Escherichia infection [Recovered/Resolved]
  - Arthralgia [Unknown]
  - Weight decreased [Not Recovered/Not Resolved]
  - Necrosis [Not Recovered/Not Resolved]
  - Stress [Unknown]
  - Anxiety [Unknown]
  - Fatigue [Unknown]
  - Lacrimation increased [Unknown]
  - Fatigue [Unknown]
  - Quality of life decreased [Unknown]
  - Sinus congestion [Unknown]

NARRATIVE: CASE EVENT DATE: 20120904
